FAERS Safety Report 25254499 (Version 3)
Quarter: 2025Q2

REPORT INFORMATION
  Report Type: Report from Study
  Country: US (occurrence: US)
  Receive Date: 20250430
  Receipt Date: 20250605
  Transmission Date: 20250717
  Serious: Yes (Other)
  Sender: TAKEDA
  Company Number: US-TAKEDA-US201940701

PATIENT
  Age: 59 Year
  Sex: Female
  Weight: 70 kg

DRUGS (22)
  1. HUMAN IMMUNOGLOBULIN G [Suspect]
     Active Substance: HUMAN IMMUNOGLOBULIN G
     Indication: Immunodeficiency common variable
     Dosage: 25 GRAM, 1/WEEK
  2. HUMAN IMMUNOGLOBULIN G [Suspect]
     Active Substance: HUMAN IMMUNOGLOBULIN G
     Indication: Primary immunodeficiency syndrome
     Dosage: 20 GRAM, 1/WEEK
  3. HUMAN IMMUNOGLOBULIN G [Suspect]
     Active Substance: HUMAN IMMUNOGLOBULIN G
  4. HUMAN IMMUNOGLOBULIN G [Suspect]
     Active Substance: HUMAN IMMUNOGLOBULIN G
     Dosage: 10 GRAM, 1/WEEK
  5. DIPHENHYDRAMINE [Concomitant]
     Active Substance: DIPHENHYDRAMINE
  6. EPINEPHRINE [Concomitant]
     Active Substance: EPINEPHRINE
  7. FLUTICASONE PROPIONATE [Concomitant]
     Active Substance: FLUTICASONE PROPIONATE
  8. LEVOTHYROXINE SODIUM [Concomitant]
     Active Substance: LEVOTHYROXINE SODIUM
  9. CEFDINIR [Concomitant]
     Active Substance: CEFDINIR
  10. ACETAMINOPHEN [Concomitant]
     Active Substance: ACETAMINOPHEN
  11. Allergy relief [Concomitant]
  12. LAMOTRIGINE [Concomitant]
     Active Substance: LAMOTRIGINE
  13. ESTRADIOL VALERATE [Concomitant]
     Active Substance: ESTRADIOL VALERATE
  14. Lmx [Concomitant]
  15. VALACYCLOVIR [Concomitant]
     Active Substance: VALACYCLOVIR HYDROCHLORIDE
  16. TOPIRAMATE [Concomitant]
     Active Substance: TOPIRAMATE
  17. MOXIFLOXACIN [Concomitant]
     Active Substance: MOXIFLOXACIN
  18. DIPHENHYDRAMINE HYDROCHLORIDE [Concomitant]
     Active Substance: DIPHENHYDRAMINE HYDROCHLORIDE
  19. ESTRADIOL [Concomitant]
     Active Substance: ESTRADIOL
  20. VITAMINS [Concomitant]
     Active Substance: VITAMINS
  21. Vitamin d3 vitamin k1 [Concomitant]
  22. OMEPRAZOLE [Concomitant]
     Active Substance: OMEPRAZOLE

REACTIONS (14)
  - Gastrointestinal disorder [Unknown]
  - Bronchitis [Not Recovered/Not Resolved]
  - Depressed mood [Unknown]
  - Sinusitis [Not Recovered/Not Resolved]
  - Influenza like illness [Unknown]
  - Malaise [Unknown]
  - Nausea [Unknown]
  - Suspected COVID-19 [Unknown]
  - Laryngitis [Unknown]
  - Nasopharyngitis [Unknown]
  - Insurance issue [Unknown]
  - Product use issue [Unknown]
  - Pyrexia [Unknown]
  - COVID-19 [Recovering/Resolving]

NARRATIVE: CASE EVENT DATE: 20230724
